FAERS Safety Report 5727699-1 (Version None)
Quarter: 2008Q2

REPORT INFORMATION
  Report Type: 
  Country: None (occurrence: None)
  Receive Date: 20080505
  Receipt Date: 20080421
  Transmission Date: 20081010
  Serious: Yes (Disabling, Other)
  Sender: FDA-Public Use
  Company Number: PHEH2008US03946

PATIENT
  Sex: Female

DRUGS (2)
  1. BROMOCRIPTINE MESYLATE [Suspect]
     Dosage: UNK, BID (AM, HS)
     Route: 065
  2. DOSTINEX [Suspect]

REACTIONS (2)
  - HEAD DISCOMFORT [None]
  - PITUITARY TUMOUR [None]
